FAERS Safety Report 15014736 (Version 1)
Quarter: 2018Q2

REPORT INFORMATION
  Report Type: Spontaneous
  Country: US (occurrence: US)
  Receive Date: 20180530
  Receipt Date: 20180530
  Transmission Date: 20180711
  Serious: Yes (Life-Threatening, Hospitalization, Other)
  Sender: FDA-Public Use
  Company Number: None

PATIENT
  Age: 76 Year

DRUGS (2)
  1. TOUJEO [Suspect]
     Active Substance: INSULIN GLARGINE
  2. JANUVIA [Suspect]
     Active Substance: SITAGLIPTIN PHOSPHATE

REACTIONS (5)
  - Syncope [None]
  - Unresponsive to stimuli [None]
  - Staring [None]
  - Seizure [None]
  - Hypoglycaemia [None]

NARRATIVE: CASE EVENT DATE: 20170323
